FAERS Safety Report 20330785 (Version 2)
Quarter: 2022Q1

REPORT INFORMATION
  Report Type: Spontaneous
  Country: JP (occurrence: JP)
  Receive Date: 20220113
  Receipt Date: 20220126
  Transmission Date: 20220423
  Serious: Yes (Other)
  Sender: FDA-Public Use
  Company Number: JP-ASTELLAS-2022JP000338

PATIENT
  Age: 73 Year
  Sex: Male
  Weight: 57 kg

DRUGS (2)
  1. XOSPATA [Suspect]
     Active Substance: GILTERITINIB
     Indication: Acute myeloid leukaemia
     Route: 048
     Dates: start: 20211122, end: 20211219
  2. HYDREA [Concomitant]
     Active Substance: HYDROXYUREA
     Indication: Leukaemia recurrent
     Dosage: UNK UNK, UNKNOWN FREQ.
     Route: 048
     Dates: start: 20211122

REACTIONS (2)
  - Pancytopenia [Not Recovered/Not Resolved]
  - Myeloblast count increased [Recovering/Resolving]

NARRATIVE: CASE EVENT DATE: 20211126
